FAERS Safety Report 7680935-7 (Version None)
Quarter: 2011Q3

REPORT INFORMATION
  Report Type: 
  Country: None (occurrence: None)
  Receive Date: 20110809
  Receipt Date: 20110728
  Transmission Date: 20111222
  Serious: Yes (Other)
  Sender: FDA-Public Use
  Company Number: 2011P1007988

PATIENT
  Sex: Male
  Weight: 72.5755 kg

DRUGS (1)
  1. DEXTROAMPHETAMINE SACCHARATE, AMPHETAMINE ASPARATE MONOHYDRATE, DEXTRO [Suspect]
     Dates: start: 20100101

REACTIONS (7)
  - ANXIETY [None]
  - NERVOUS SYSTEM DISORDER [None]
  - IRRITABILITY [None]
  - TACHYCARDIA [None]
  - PRODUCT SUBSTITUTION ISSUE [None]
  - PERSONALITY CHANGE [None]
  - DRUG EFFECT INCREASED [None]
